FAERS Safety Report 19174380 (Version 2)
Quarter: 2021Q3

REPORT INFORMATION
  Report Type: Spontaneous
  Country: NL (occurrence: DE)
  Receive Date: 20210423
  Receipt Date: 20210713
  Transmission Date: 20211014
  Serious: Yes (Death, Hospitalization)
  Sender: FDA-Public Use
  Company Number: DE-FRESENIUS KABI-FK202103797

PATIENT
  Age: 79 Year
  Sex: Male

DRUGS (15)
  1. PACLITAXEL ALBUMIN [Suspect]
     Active Substance: PACLITAXEL
     Indication: PRODUCT USED FOR UNKNOWN INDICATION
     Dosage: 230 MG, BATCH / LOT NR.: REPORTED AS {UNKNOWN}
     Route: 042
     Dates: start: 20210204
  2. ACETYLSALICYLIC ACID [Concomitant]
     Active Substance: ASPIRIN
     Indication: PRODUCT USED FOR UNKNOWN INDICATION
     Dosage: 100 MG, 0?1?0?0, BATCH / LOT NR.: REPORTED AS {UNKNOWN}
     Route: 065
  3. GEMCITABINE. [Suspect]
     Active Substance: GEMCITABINE
     Indication: PRODUCT USED FOR UNKNOWN INDICATION
     Dosage: 1900 MG, BATCH / LOT NR.: REPORTED AS {UNKNOWN}
     Route: 042
     Dates: start: 20210204
  4. CANDESARTAN. [Concomitant]
     Active Substance: CANDESARTAN
     Dosage: BATCH / LOT NR.: REPORTED AS {UNKNOWN}
     Route: 065
  5. INSULIN GLARGINE [Concomitant]
     Active Substance: INSULIN GLARGINE
     Indication: PRODUCT USED FOR UNKNOWN INDICATION
     Dosage: 18 IE, 0?0?1?0, BATCH / LOT NR.: REPORTED AS {UNKNOWN}
     Route: 065
  6. METOCLOPRAMIDE. [Concomitant]
     Active Substance: METOCLOPRAMIDE
     Indication: PRODUCT USED FOR UNKNOWN INDICATION
     Dosage: 10 MG, AS NEEDED UP TO 3 TIMES, BATCH / LOT NR.: REPORTED AS {UNKNOWN}
     Route: 065
  7. SODIUM CHLORIDE (MANUFACTURER UNKNOWN) [Suspect]
     Active Substance: SODIUM CHLORIDE
     Indication: PRODUCT USED FOR UNKNOWN INDICATION
     Dosage: 1000 MG, BATCH / LOT NR.: REPORTED AS {UNKNOWN}
     Route: 042
     Dates: start: 20210204
  8. METFORMIN [Concomitant]
     Active Substance: METFORMIN HYDROCHLORIDE
     Indication: PRODUCT USED FOR UNKNOWN INDICATION
     Dosage: DISCONTINUED, BATCH / LOT NR.: REPORTED AS {UNKNOWN}
     Route: 065
  9. ONDANSETRON [Concomitant]
     Active Substance: ONDANSETRON
     Indication: PRODUCT USED FOR UNKNOWN INDICATION
     Dosage: 8 MG, AS NEEDED UP TO 2 TIMES, BATCH / LOT NR.: REPORTED AS {UNKNOWN}
     Route: 065
  10. TORASEMIDE [Concomitant]
     Active Substance: TORSEMIDE
     Indication: PRODUCT USED FOR UNKNOWN INDICATION
     Dosage: 10 MG, 1?0?0?0, BATCH / LOT NR.: REPORTED AS {UNKNOWN}
     Route: 065
  11. CANDESARTAN. [Concomitant]
     Active Substance: CANDESARTAN
     Indication: PRODUCT USED FOR UNKNOWN INDICATION
     Dosage: 16 MG, 1?0?1?0, BATCH / LOT NR.: REPORTED AS {UNKNOWN}
  12. DEXAMETHASONE. [Suspect]
     Active Substance: DEXAMETHASONE
     Indication: PRODUCT USED FOR UNKNOWN INDICATION
     Dosage: 8 MG, BATCH / LOT NR.: REPORTED AS {UNKNOWN}
     Route: 048
     Dates: start: 20210204
  13. ATORVASTATIN [Concomitant]
     Active Substance: ATORVASTATIN
     Indication: PRODUCT USED FOR UNKNOWN INDICATION
     Dosage: 40 MG, 0?0?1?0, BATCH / LOT NR.: REPORTED AS {UNKNOWN}
     Route: 065
  14. METAMIZOLE [Concomitant]
     Active Substance: METAMIZOLE
     Indication: PRODUCT USED FOR UNKNOWN INDICATION
     Dosage: 500 MG, AS NEEDED UP TO 4 TIMES, BATCH / LOT NR.: REPORTED AS {UNKNOWN}
     Route: 065
  15. METOPROLOL. [Concomitant]
     Active Substance: METOPROLOL
     Indication: PRODUCT USED FOR UNKNOWN INDICATION
     Dosage: 95 MG, 1?0?0.5?0, BATCH / LOT NR.: REPORTED AS {UNKNOWN}
     Route: 065

REACTIONS (5)
  - Immobile [Unknown]
  - Pyrexia [Unknown]
  - Asthenia [Unknown]
  - General physical health deterioration [Unknown]
  - Jaundice [Unknown]

NARRATIVE: CASE EVENT DATE: 2021
